FAERS Safety Report 8811761 (Version 1)
Quarter: 2012Q4

REPORT INFORMATION
  Report Type: Spontaneous
  Country: US (occurrence: None)
  Receive Date: 20120925
  Receipt Date: 20120925
  Transmission Date: 20130627
  Serious: Yes (Life-Threatening)
  Sender: FDA-Public Use
  Company Number: None

PATIENT
  Age: 76 Year
  Sex: Male
  Weight: 77.11 kg

DRUGS (1)
  1. BENICAR HCT [Suspect]
     Route: 048
     Dates: start: 20070101, end: 20120911

REACTIONS (6)
  - Muscle spasms [None]
  - Abdominal distension [None]
  - Diarrhoea [None]
  - Dehydration [None]
  - Weight decreased [None]
  - Asthenia [None]
